FAERS Safety Report 19707142 (Version 1)
Quarter: 2021Q3

REPORT INFORMATION
  Report Type: Spontaneous
  Country: US (occurrence: US)
  Receive Date: 20210817
  Receipt Date: 20210817
  Transmission Date: 20211014
  Serious: Yes (Hospitalization)
  Sender: FDA-Public Use
  Company Number: None

PATIENT
  Age: 75 Year
  Sex: Female

DRUGS (1)
  1. FERRIPROX [Suspect]
     Active Substance: DEFERIPRONE
     Indication: HEREDITARY HAEMOCHROMATOSIS
     Route: 048
     Dates: start: 20210723, end: 20210812

REACTIONS (3)
  - Oedema [None]
  - Atrial fibrillation [None]
  - Dysuria [None]

NARRATIVE: CASE EVENT DATE: 20210806
